FAERS Safety Report 24937415 (Version 1)
Quarter: 2025Q1

REPORT INFORMATION
  Report Type: Report from Study
  Country: US (occurrence: US)
  Receive Date: 20250206
  Receipt Date: 20250206
  Transmission Date: 20250409
  Serious: Yes (Hospitalization, Other)
  Sender: ACADIA PHARMACEUTICALS
  Company Number: US-ACADIA PHARMACEUTICALS INC.-ACA-2025-PIM-001111

PATIENT
  Age: 64 Year
  Sex: Male

DRUGS (28)
  1. NUPLAZID [Suspect]
     Active Substance: PIMAVANSERIN TARTRATE
     Indication: Hallucination, visual
     Dosage: 10 MILLIGRAM, BID
     Route: 048
     Dates: start: 20241021
  2. NUPLAZID [Suspect]
     Active Substance: PIMAVANSERIN TARTRATE
     Indication: Parkinson^s disease
  3. ALBUTEROL [Concomitant]
     Active Substance: ALBUTEROL
  4. AMLODIPINE [Concomitant]
     Active Substance: AMLODIPINE BESYLATE
  5. LIPITOR [Concomitant]
     Active Substance: ATORVASTATIN CALCIUM
  6. SYMBICORT [Concomitant]
     Active Substance: BUDESONIDE\FORMOTEROL FUMARATE DIHYDRATE
  7. BUSPAR [Concomitant]
     Active Substance: BUSPIRONE HYDROCHLORIDE
  8. COREG [Concomitant]
     Active Substance: CARVEDILOL
  9. CLONAZEPAM [Concomitant]
     Active Substance: CLONAZEPAM
  10. PLAVIX [Concomitant]
     Active Substance: CLOPIDOGREL BISULFATE
  11. ZETIA [Concomitant]
     Active Substance: EZETIMIBE
  12. FARXIGA [Concomitant]
     Active Substance: DAPAGLIFLOZIN PROPANEDIOL
  13. HYDRALAZINE [Concomitant]
     Active Substance: HYDRALAZINE HYDROCHLORIDE
  14. VIMPAT [Concomitant]
     Active Substance: LACOSAMIDE
  15. LITHIUM CARBONATE [Concomitant]
     Active Substance: LITHIUM CARBONATE
  16. LOSARTAN [Concomitant]
     Active Substance: LOSARTAN
  17. ZOFRAN [Concomitant]
     Active Substance: ONDANSETRON HYDROCHLORIDE
  18. PHENERGAN [Concomitant]
     Active Substance: PROMETHAZINE HYDROCHLORIDE
  19. OMEPRAZOLE [Concomitant]
     Active Substance: OMEPRAZOLE
  20. RISPERDAL [Concomitant]
     Active Substance: RISPERIDONE
  21. TRESIBA [Concomitant]
     Active Substance: INSULIN DEGLUDEC
  22. NOVOLOG [Concomitant]
     Active Substance: INSULIN ASPART
  23. ALLEGRA [Concomitant]
     Active Substance: FEXOFENADINE HYDROCHLORIDE
  24. ACRIVASTINE [Concomitant]
     Active Substance: ACRIVASTINE
  25. TYLENOL [Concomitant]
     Active Substance: ACETAMINOPHEN
  26. MELATONIN [Concomitant]
     Active Substance: MELATONIN
  27. MUPIROCIN [Concomitant]
     Active Substance: MUPIROCIN
  28. SCOPOLAMINE [Concomitant]
     Active Substance: SCOPOLAMINE

REACTIONS (3)
  - Cerebrovascular accident [Recovered/Resolved]
  - Hypertension [Recovered/Resolved]
  - Asthenia [Recovered/Resolved]

NARRATIVE: CASE EVENT DATE: 20250125
